FAERS Safety Report 4433572-1 (Version None)
Quarter: 2004Q3

REPORT INFORMATION
  Report Type: 
  Country: None (occurrence: None)
  Receive Date: 20040824
  Receipt Date: 20040813
  Transmission Date: 20050211
  Serious: Yes (Hospitalization)
  Sender: FDA-Public Use
  Company Number: HQ5940027DEC2002

PATIENT
  Age: 58 Year
  Sex: Female
  Weight: 59.47 kg

DRUGS (14)
  1. MYLOTARG [Suspect]
     Indication: ACUTE MYELOID LEUKAEMIA
     Dosage: 9 MG/M^2 1X PER 1 DAY INTRAVENOUS
     Route: 042
     Dates: start: 20021107, end: 20021107
  2. MYLOTARG [Suspect]
     Indication: ACUTE MYELOID LEUKAEMIA
     Dosage: 9 MG/M^2 1X PER 1 DAY INTRAVENOUS
     Route: 042
     Dates: start: 20021121, end: 20021121
  3. POTASSIUM CHLORIDE [Concomitant]
  4. MULTIVITAMINS (ASCORBIC ACID/ERGOCALCIFEROL/FOLIC ACID/NICOTINAMIDE/PA [Concomitant]
  5. PROTONIX [Concomitant]
  6. LORAZEPAM [Concomitant]
  7. LOPRESSOR [Concomitant]
  8. ACYCLOVIR [Concomitant]
  9. DIFLUCAN [Concomitant]
  10. TEQUIN [Concomitant]
  11. PERIDEX (CHLORPHEXIDINE GLUCONATE) [Concomitant]
  12. AMICAR (AMINOCARPROIC ACID) [Concomitant]
  13. AUGMENTIN [Concomitant]
  14. SLOW MAG (MAGNESIUM CHLORIDE ANHYDROUS) [Concomitant]

REACTIONS (14)
  - ABDOMINAL PAIN LOWER [None]
  - ACUTE MYELOID LEUKAEMIA [None]
  - BACK PAIN [None]
  - BRONCHITIS ACUTE [None]
  - CONSTIPATION [None]
  - DIARRHOEA [None]
  - HAEMOGLOBIN DECREASED [None]
  - MALIGNANT NEOPLASM PROGRESSION [None]
  - NAUSEA [None]
  - PYREXIA [None]
  - SERRATIA INFECTION [None]
  - SINUSITIS [None]
  - VOMITING [None]
  - WHITE BLOOD CELL COUNT INCREASED [None]
